FAERS Safety Report 12631900 (Version 2)
Quarter: 2016Q3

REPORT INFORMATION
  Report Type: Spontaneous
  Country: US (occurrence: US)
  Receive Date: 20160808
  Receipt Date: 20160808
  Transmission Date: 20161109
  Serious: No
  Sender: FDA-Public Use
  Company Number: US-BEH-2016061386

PATIENT
  Sex: Male
  Weight: 76 kg

DRUGS (18)
  1. HIZENTRA [Suspect]
     Active Substance: HUMAN IMMUNOGLOBULIN G
     Indication: IMMUNODEFICIENCY COMMON VARIABLE
     Route: 058
  2. PROVIGIL [Concomitant]
     Active Substance: MODAFINIL
  3. TESTOSTERONE. [Concomitant]
     Active Substance: TESTOSTERONE
  4. CIPRODEX [Concomitant]
     Active Substance: CIPROFLOXACIN HYDROCHLORIDE\DEXAMETHASONE
  5. CLARINEX [Concomitant]
     Active Substance: DESLORATADINE
  6. EPIPEN [Concomitant]
     Active Substance: EPINEPHRINE
  7. DOXYCYCLINE. [Concomitant]
     Active Substance: DOXYCYCLINE
  8. MUPIROCIN. [Concomitant]
     Active Substance: MUPIROCIN
  9. TIZANIDINE. [Concomitant]
     Active Substance: TIZANIDINE
  10. DIPHENHYDRAMINE. [Concomitant]
     Active Substance: DIPHENHYDRAMINE
  11. AMBIEN [Concomitant]
     Active Substance: ZOLPIDEM TARTRATE
  12. LOSARTAN-HCTZ [Concomitant]
     Active Substance: HYDROCHLOROTHIAZIDE\LOSARTAN
  13. METOPROLOL. [Concomitant]
     Active Substance: METOPROLOL
  14. PILOCARPINE. [Concomitant]
     Active Substance: PILOCARPINE
  15. RANEXA [Concomitant]
     Active Substance: RANOLAZINE
  16. TESTIM [Concomitant]
     Active Substance: TESTOSTERONE
  17. NASONEX [Concomitant]
     Active Substance: MOMETASONE FUROATE
  18. FLOMAX [Concomitant]
     Active Substance: TAMSULOSIN HYDROCHLORIDE

REACTIONS (1)
  - Ear infection [Unknown]
